FAERS Safety Report 10018141 (Version 1)
Quarter: 2014Q1

REPORT INFORMATION
  Report Type: Spontaneous
  Country: TW (occurrence: TW)
  Receive Date: 20140318
  Receipt Date: 20140318
  Transmission Date: 20141002
  Serious: Yes (Other)
  Sender: FDA-Public Use
  Company Number: TW-SA-2014SA034065

PATIENT
  Sex: 0

DRUGS (1)
  1. RIFAMPICIN [Suspect]
     Indication: TUBERCULOSIS
     Route: 065

REACTIONS (1)
  - Cholestasis [Unknown]
